FAERS Safety Report 8874911 (Version 3)
Quarter: 2012Q4

REPORT INFORMATION
  Report Type: 
  Country: US (occurrence: US)
  Receive Date: 20121030
  Receipt Date: 20121217
  Transmission Date: 20130627
  Serious: Yes (Death, Hospitalization)
  Sender: FDA-Public Use
  Company Number: US-GILEAD-2012-0063696

PATIENT
  Sex: Female

DRUGS (3)
  1. LETAIRIS [Suspect]
     Indication: COR PULMONALE CHRONIC
     Dosage: 10 mg, QD
     Route: 048
     Dates: start: 201106
  2. LETAIRIS [Suspect]
     Indication: PULMONARY HYPERTENSION
  3. LETAIRIS [Suspect]
     Indication: SCLERODERMA

REACTIONS (3)
  - Respiratory failure [Fatal]
  - Pulmonary arterial hypertension [Fatal]
  - Cardiac failure [Unknown]
